FAERS Safety Report 5933130-3 (Version None)
Quarter: 2008Q4

REPORT INFORMATION
  Report Type: 
  Country: None (occurrence: None)
  Receive Date: 20081028
  Receipt Date: 20081021
  Transmission Date: 20090506
  Serious: Yes (Hospitalization)
  Sender: FDA-Public Use
  Company Number: US-SANOFI-SYNTHELABO-A03200804067

PATIENT
  Sex: Male

DRUGS (3)
  1. LEUCOVORIN CALCIUM [Suspect]
     Indication: METASTATIC NEOPLASM
     Route: 042
  2. ELOXATIN [Suspect]
     Indication: METASTATIC NEOPLASM
     Route: 042
  3. FLUOROURACIL [Suspect]
     Indication: METASTATIC NEOPLASM
     Route: 042

REACTIONS (2)
  - HYPERSENSITIVITY [None]
  - LOSS OF CONSCIOUSNESS [None]
